FAERS Safety Report 7330130-6 (Version None)
Quarter: 2011Q1

REPORT INFORMATION
  Report Type: 
  Country: None (occurrence: None)
  Receive Date: 20110303
  Receipt Date: 20110218
  Transmission Date: 20110831
  Serious: Yes (Hospitalization, Other)
  Sender: FDA-Public Use
  Company Number: PHHY2011BR13674

PATIENT
  Sex: Male

DRUGS (2)
  1. HYDREA [Suspect]
     Indication: CHRONIC MYELOID LEUKAEMIA
  2. GLEEVEC [Suspect]
     Indication: CHRONIC MYELOID LEUKAEMIA
     Dosage: 400 MG, QD
     Route: 048
     Dates: start: 20101201

REACTIONS (4)
  - WHITE BLOOD CELL COUNT INCREASED [None]
  - DEAFNESS UNILATERAL [None]
  - WOUND [None]
  - DRUG INEFFECTIVE [None]
